FAERS Safety Report 15346415 (Version 2)
Quarter: 2019Q3

REPORT INFORMATION
  Report Type: Spontaneous
  Country: US (occurrence: US)
  Receive Date: 20180904
  Receipt Date: 20190806
  Transmission Date: 20191004
  Serious: No
  Sender: FDA-Public Use
  Company Number: US-PFIZER INC-2018355043

PATIENT
  Age: 70 Year
  Sex: Female
  Weight: 88 kg

DRUGS (2)
  1. IBRANCE [Suspect]
     Active Substance: PALBOCICLIB
     Indication: BREAST CANCER METASTATIC
     Dosage: UNK, CYCLIC (21 DAYS ON AND 7 DAYS OFF)
  2. BIAXIN [Interacting]
     Active Substance: CLARITHROMYCIN
     Indication: SINUSITIS
     Dosage: UNK

REACTIONS (1)
  - Drug interaction [Unknown]
